FAERS Safety Report 20248113 (Version 2)
Quarter: 2022Q2

REPORT INFORMATION
  Report Type: Report from Study
  Country: IT (occurrence: IT)
  Receive Date: 20211229
  Receipt Date: 20220429
  Transmission Date: 20220721
  Serious: Yes (Hospitalization)
  Sender: FDA-Public Use
  Company Number: IT-GLAXOSMITHKLINE-IT2021GSK262690

PATIENT
  Age: 82 Year
  Sex: Male

DRUGS (1)
  1. UMECLIDINIUM BROMIDE\VILANTEROL TRIFENATATE [Suspect]
     Active Substance: UMECLIDINIUM BROMIDE\VILANTEROL TRIFENATATE
     Indication: Chronic obstructive pulmonary disease
     Dosage: 7 DOSES PER INHALER
     Route: 055
     Dates: start: 20191105

REACTIONS (1)
  - Aortic aneurysm [Recovered/Resolved]

NARRATIVE: CASE EVENT DATE: 20210329
